FAERS Safety Report 8092001-X (Version None)
Quarter: 2012Q1

REPORT INFORMATION
  Report Type: 
  Country: None (occurrence: None)
  Receive Date: 20120131
  Receipt Date: 20120124
  Transmission Date: 20120608
  Serious: Yes (Other)
  Sender: FDA-Public Use
  Company Number: JP-JNJFOC-20111006334

PATIENT
  Age: 70 Year
  Sex: Male

DRUGS (6)
  1. ISONIAZID [Suspect]
     Indication: PULMONARY TUBERCULOSIS
     Route: 065
  2. PYRAZINAMIDE [Suspect]
     Indication: PULMONARY TUBERCULOSIS
     Route: 065
  3. LEVOFLOXACIN [Suspect]
     Indication: PULMONARY TUBERCULOSIS
     Route: 065
  4. RIFAMPICIN [Concomitant]
     Indication: PULMONARY TUBERCULOSIS
     Route: 065
  5. ETHAMBUTOL HYDROCHLORIDE [Concomitant]
     Indication: PULMONARY TUBERCULOSIS
     Route: 065
  6. CYCLOSERINE [Concomitant]
     Indication: PULMONARY TUBERCULOSIS
     Route: 065

REACTIONS (2)
  - RENAL DISORDER [None]
  - LIVER DISORDER [None]
